FAERS Safety Report 12444762 (Version 1)
Quarter: 2016Q2

REPORT INFORMATION
  Report Type: Spontaneous
  Country: US (occurrence: US)
  Receive Date: 20160607
  Receipt Date: 20160607
  Transmission Date: 20160815
  Serious: Yes (Other)
  Sender: FDA-Public Use
  Company Number: US-BAYER-2016-103275

PATIENT
  Sex: Female

DRUGS (1)
  1. CIPRO [Suspect]
     Active Substance: CIPROFLOXACIN HYDROCHLORIDE
     Dosage: UNK

REACTIONS (21)
  - Immunodeficiency common variable [None]
  - Bronchitis [None]
  - Gastrooesophageal reflux disease [None]
  - Aspergillus infection [None]
  - Large intestine polyp [None]
  - Myalgia [None]
  - Sarcoidosis [None]
  - Fibromatosis [None]
  - Tendon rupture [None]
  - Colitis [None]
  - Diverticulum [None]
  - Neurofibroma [None]
  - Bronchospasm [None]
  - Hypertension [None]
  - Arthralgia [None]
  - Rheumatoid arthritis [None]
  - Clostridium difficile infection [None]
  - Pharyngitis streptococcal [None]
  - Vitamin D deficiency [None]
  - Chest pain [None]
  - Dyspnoea [None]
